FAERS Safety Report 5279368-2 (Version None)
Quarter: 2007Q1

REPORT INFORMATION
  Report Type: 
  Country: None (occurrence: None)
  Receive Date: 20061213
  Receipt Date: 20050516
  Transmission Date: 20070707
  Serious: Yes (Other)
  Sender: FDA-Public Use
  Company Number: 2005UW04888

PATIENT
  Age: 24 Year
  Sex: Female
  Weight: 54.43 kg

DRUGS (3)
  1. SEROQUEL [Suspect]
     Indication: PANIC ATTACK
     Dosage: 400 MG PO
     Route: 048
     Dates: start: 20050227, end: 20050327
  2. SERZONE [Suspect]
     Indication: ANXIETY
  3. BIRTH CONTROL PILL [Concomitant]

REACTIONS (8)
  - ANXIETY [None]
  - FEELING HOT [None]
  - HYPERHIDROSIS [None]
  - INSOMNIA [None]
  - MUSCLE TWITCHING [None]
  - PALPITATIONS [None]
  - SOMNOLENCE [None]
  - WRONG DRUG ADMINISTERED [None]
